FAERS Safety Report 12668488 (Version 13)
Quarter: 2019Q2

REPORT INFORMATION
  Report Type: Spontaneous
  Country: US (occurrence: US)
  Receive Date: 20160819
  Receipt Date: 20190422
  Transmission Date: 20190711
  Serious: No
  Sender: FDA-Public Use
  Company Number: US-ACTELION-A-NJ2016-140996

PATIENT
  Age: 75 Year
  Sex: Female
  Weight: 41.72 kg

DRUGS (6)
  1. NITRO BID [Concomitant]
  2. ADEMPAS [Suspect]
     Active Substance: RIOCIGUAT
     Dosage: 1 MG, UNK
     Route: 065
  3. OPSUMIT [Suspect]
     Active Substance: MACITENTAN
     Dosage: 10 UNK
     Route: 048
  4. OPSUMIT [Suspect]
     Active Substance: MACITENTAN
     Indication: PULMONARY HYPERTENSION
     Dosage: 10 MG, QD
     Route: 048
     Dates: start: 20131210
  5. ADEMPAS [Suspect]
     Active Substance: RIOCIGUAT
     Indication: PRODUCT USED FOR UNKNOWN INDICATION
     Dosage: 0.5 MG, UNK
     Route: 065
     Dates: end: 20170503
  6. ADEMPAS [Suspect]
     Active Substance: RIOCIGUAT
     Dosage: UNK
     Route: 065
     Dates: start: 20160813

REACTIONS (21)
  - Abdominal pain [Unknown]
  - Vomiting [Unknown]
  - Diarrhoea [Unknown]
  - Peripheral vascular disorder [Unknown]
  - Asthenia [Recovering/Resolving]
  - Nausea [Unknown]
  - Constipation [Unknown]
  - Urine calcium increased [Unknown]
  - Gastrointestinal pain [Unknown]
  - Oedema peripheral [Unknown]
  - Abdominal distension [Unknown]
  - Pain [Unknown]
  - Candida infection [Unknown]
  - Dizziness [Unknown]
  - Cough [Unknown]
  - CREST syndrome [Unknown]
  - Multiple allergies [Unknown]
  - Nasal congestion [Unknown]
  - Gastrooesophageal reflux disease [Unknown]
  - Malaise [Not Recovered/Not Resolved]
  - Upper respiratory tract infection [Unknown]

NARRATIVE: CASE EVENT DATE: 20160814
